FAERS Safety Report 25471291 (Version 2)
Quarter: 2025Q3

REPORT INFORMATION
  Report Type: Spontaneous
  Country: DO (occurrence: DO)
  Receive Date: 20250624
  Receipt Date: 20250722
  Transmission Date: 20251020
  Serious: Yes (Death, Hospitalization, Other)
  Sender: ROCHE
  Company Number: DO-ROCHE-10000317926

PATIENT
  Age: 59 Year
  Sex: Male

DRUGS (2)
  1. ATEZOLIZUMAB [Suspect]
     Active Substance: ATEZOLIZUMAB
     Indication: Hepatocellular carcinoma
     Route: 065
     Dates: start: 20240517, end: 20240809
  2. BEVACIZUMAB [Suspect]
     Active Substance: BEVACIZUMAB
     Indication: Hepatocellular carcinoma
     Route: 065
     Dates: start: 20240517, end: 20240809

REACTIONS (5)
  - Haemoptysis [Unknown]
  - Rectal abscess [Unknown]
  - Varices oesophageal [Unknown]
  - Hepatic enzyme increased [Unknown]
  - Death [Fatal]

NARRATIVE: CASE EVENT DATE: 20240710
